FAERS Safety Report 16614720 (Version 1)
Quarter: 2019Q3

REPORT INFORMATION
  Report Type: Spontaneous
  Country: US (occurrence: US)
  Receive Date: 20190610
  Receipt Date: 20190610
  Transmission Date: 20191004
  Serious: No
  Sender: FDA-Public Use
  Company Number: None

PATIENT
  Sex: Male

DRUGS (1)
  1. PROCRIT [Suspect]
     Active Substance: ERYTHROPOIETIN
     Indication: ANAEMIA OF CHRONIC DISEASE
     Route: 058
     Dates: start: 20190314

REACTIONS (4)
  - Chest discomfort [None]
  - Seizure [None]
  - Tremor [None]
  - Feeling cold [None]

NARRATIVE: CASE EVENT DATE: 201903
